FAERS Safety Report 15652144 (Version 4)
Quarter: 2020Q3

REPORT INFORMATION
  Report Type: Spontaneous
  Country: US (occurrence: US)
  Receive Date: 20181123
  Receipt Date: 20200827
  Transmission Date: 20201102
  Serious: Yes (Other)
  Sender: FDA-Public Use
  Company Number: US-GILEAD-2018-0376094

PATIENT
  Age: 52 Year
  Sex: Male
  Weight: 72.56 kg

DRUGS (74)
  1. METHYLPREDNISOLONE. [Concomitant]
     Active Substance: METHYLPREDNISOLONE
  2. OXYBUTYNIN. [Concomitant]
     Active Substance: OXYBUTYNIN CHLORIDE
  3. PROCARBAZINE [Concomitant]
     Active Substance: PROCARBAZINE
  4. PROPYLENE GLYCOL [Concomitant]
     Active Substance: PROPYLENE GLYCOL
  5. TOLTERODINE TARTRATE. [Concomitant]
     Active Substance: TOLTERODINE TARTRATE
  6. ATENOLOL. [Concomitant]
     Active Substance: ATENOLOL
  7. BECLOMETHASONE [BECLOMETASONE] [Concomitant]
     Active Substance: BECLOMETHASONE
  8. BICILLINE [Concomitant]
  9. ALEVE [Concomitant]
     Active Substance: NAPROXEN SODIUM
  10. AFLURIA NOS [Concomitant]
     Active Substance: INFLUENZA VIRUS VACCINE TRIVALENT TYPE A+B AFLURIA
  11. ATRIPLA [Suspect]
     Active Substance: EFAVIRENZ\EMTRICITABINE\TENOFOVIR DISOPROXIL FUMARATE
     Indication: HIV INFECTION
     Dosage: UNK
     Route: 048
     Dates: start: 2009, end: 20160115
  12. TRIUMEQ [Concomitant]
     Active Substance: ABACAVIR SULFATE\DOLUTEGRAVIR SODIUM\LAMIVUDINE
  13. DOXYCYCLINE HYCLATE. [Concomitant]
     Active Substance: DOXYCYCLINE HYCLATE
  14. HYDROXYZINE HCL [Concomitant]
     Active Substance: HYDROXYZINE HYDROCHLORIDE
  15. LOMUSTINE. [Concomitant]
     Active Substance: LOMUSTINE
  16. AMMONIUM LACTATE. [Concomitant]
     Active Substance: AMMONIUM LACTATE
  17. ADAPALENE. [Concomitant]
     Active Substance: ADAPALENE
  18. STRIBILD [Suspect]
     Active Substance: COBICISTAT\ELVITEGRAVIR\EMTRICITABINE\TENOFOVIR DISOPROXIL FUMARATE
     Indication: HIV INFECTION
     Dosage: UNK
     Route: 048
     Dates: start: 201601, end: 201606
  19. VENLAFAXINE [Concomitant]
     Active Substance: VENLAFAXINE HYDROCHLORIDE
  20. VITAMIN D [VITAMIN D NOS] [Concomitant]
     Active Substance: VITAMIN D NOS
  21. ASPIRIN [ACETYLSALICYLIC ACID] [Concomitant]
     Active Substance: ASPIRIN
  22. CETRIZINE [Concomitant]
     Active Substance: CETIRIZINE HYDROCHLORIDE
  23. DRONABINOL. [Concomitant]
     Active Substance: DRONABINOL
  24. PANTOPRAZOLE [Concomitant]
     Active Substance: PANTOPRAZOLE
  25. SUMATRIPTAN. [Concomitant]
     Active Substance: SUMATRIPTAN
  26. TRAMADOL. [Concomitant]
     Active Substance: TRAMADOL
  27. MINOCYCLINE [Concomitant]
     Active Substance: MINOCYCLINE HYDROCHLORIDE
  28. CEPHALEXINE [Concomitant]
     Active Substance: CEPHALEXIN
  29. FLUTICASONE. [Concomitant]
     Active Substance: FLUTICASONE
  30. CHANTIX [Concomitant]
     Active Substance: VARENICLINE TARTRATE
  31. ESOMEPRAZOLE. [Concomitant]
     Active Substance: ESOMEPRAZOLE MAGNESIUM
  32. LATANOPROST. [Concomitant]
     Active Substance: LATANOPROST
  33. MIRTAZAPINE. [Concomitant]
     Active Substance: MIRTAZAPINE
  34. NICOTINE. [Concomitant]
     Active Substance: NICOTINE
  35. ONDANSETRON [Concomitant]
     Active Substance: ONDANSETRON
  36. PREDNISONE. [Concomitant]
     Active Substance: PREDNISONE
  37. AZITHROMYCIN ANHYDROUS. [Concomitant]
     Active Substance: AZITHROMYCIN ANHYDROUS
  38. VIAGRA [Concomitant]
     Active Substance: SILDENAFIL CITRATE
  39. CHLORHEXIDINE [Concomitant]
     Active Substance: CHLORHEXIDINE
  40. CENTRUM A TO ZINC [Concomitant]
     Active Substance: MINERALS\VITAMINS
  41. DIAZEPAM. [Concomitant]
     Active Substance: DIAZEPAM
  42. FENTANYL. [Concomitant]
     Active Substance: FENTANYL
  43. FLONASE [Concomitant]
     Active Substance: FLUTICASONE PROPIONATE
  44. TRAVATAN [Concomitant]
     Active Substance: TRAVOPROST
  45. TYLENOL [Concomitant]
     Active Substance: ACETAMINOPHEN
  46. SULFASALAZINE. [Concomitant]
     Active Substance: SULFASALAZINE
  47. TRETINOIN. [Concomitant]
     Active Substance: TRETINOIN
  48. CIALIS [Concomitant]
     Active Substance: TADALAFIL
  49. CLINDAMYCIN. [Concomitant]
     Active Substance: CLINDAMYCIN
  50. CLONIDINE. [Concomitant]
     Active Substance: CLONIDINE
  51. GABAPENTIN. [Concomitant]
     Active Substance: GABAPENTIN
  52. MYRBETRIQ [Concomitant]
     Active Substance: MIRABEGRON
  53. VENLAFAXINE [Concomitant]
     Active Substance: VENLAFAXINE HYDROCHLORIDE
  54. AMOXICILLIN. [Concomitant]
     Active Substance: AMOXICILLIN
  55. PENICILLIN VK [Concomitant]
     Active Substance: PENICILLIN V POTASSIUM
  56. MENACTRA [Concomitant]
     Active Substance: NEISSERIA MENINGITIDIS GROUP A CAPSULAR POLYSACCHARIDE DIPHTHERIA TOXOID CONJUGATE ANTIGEN\NEISSERIA MENINGITIDIS GROUP C CAPSULAR POLYSACCHARIDE DIPHTHERIA TOXOID CONJUGATE ANTIGEN\NEISSERIA MENINGITIDIS GROUP W-135 CAPSULAR POLYSACCHARIDE DIPHTHERIA TOXOID CONJUGATE ANTIGEN\NEISSERIA MENINGITIDIS
  57. CEFTRIAXONE. [Concomitant]
     Active Substance: CEFTRIAXONE
  58. CEFAZOLIN [Concomitant]
     Active Substance: CEFAZOLIN
  59. CYMBALTA [Concomitant]
     Active Substance: DULOXETINE HYDROCHLORIDE
  60. DILAUDID [Concomitant]
     Active Substance: HYDROMORPHONE HYDROCHLORIDE
  61. IBUPROFEN. [Concomitant]
     Active Substance: IBUPROFEN
  62. MARINOL [Concomitant]
     Active Substance: DRONABINOL
  63. MORPHINE [Concomitant]
     Active Substance: MORPHINE
  64. NEXIUM I.V. [Concomitant]
     Active Substance: ESOMEPRAZOLE SODIUM
  65. ERGOCALCIFEROL. [Concomitant]
     Active Substance: ERGOCALCIFEROL
  66. GENVOYA [Concomitant]
     Active Substance: COBICISTAT\ELVITEGRAVIR\EMTRICITABINE\TENOFOVIR ALAFENAMIDE FUMARATE
  67. CYCLOBENZAPRINE. [Concomitant]
     Active Substance: CYCLOBENZAPRINE
  68. FAMOTIDINE. [Concomitant]
     Active Substance: FAMOTIDINE
  69. MOMETASONE [Concomitant]
     Active Substance: MOMETASONE
  70. NYSTATIN. [Concomitant]
     Active Substance: NYSTATIN
  71. OTEZLA [Concomitant]
     Active Substance: APREMILAST
  72. OXYCODONE [Concomitant]
     Active Substance: OXYCODONE
  73. VINCRISTINE [Concomitant]
     Active Substance: VINCRISTINE
  74. ZANTAC [Concomitant]
     Active Substance: RANITIDINE HYDROCHLORIDE

REACTIONS (10)
  - Renal disorder [Unknown]
  - Renal impairment [Not Recovered/Not Resolved]
  - Emotional distress [Unknown]
  - Osteoporosis [Unknown]
  - Anxiety [Unknown]
  - Economic problem [Unknown]
  - Pain [Unknown]
  - Chronic kidney disease [Not Recovered/Not Resolved]
  - Bone density decreased [Unknown]
  - Anhedonia [Unknown]

NARRATIVE: CASE EVENT DATE: 2016
